FAERS Safety Report 25417407 (Version 1)
Quarter: 2025Q2

REPORT INFORMATION
  Report Type: Spontaneous
  Country: US (occurrence: None)
  Receive Date: 20250608
  Receipt Date: 20250608
  Transmission Date: 20250716
  Serious: Yes (Disabling)
  Sender: FDA-CTU
  Company Number: None

PATIENT
  Age: 61 Year
  Sex: Female
  Weight: 47.25 kg

DRUGS (13)
  1. IBSRELA [Suspect]
     Active Substance: TENAPANOR HYDROCHLORIDE
     Dates: start: 20250519, end: 20250608
  2. DILTIAZEM [Concomitant]
     Active Substance: DILTIAZEM
  3. MEMANTINE [Concomitant]
     Active Substance: MEMANTINE
  4. LOSARTAN [Concomitant]
     Active Substance: LOSARTAN
  5. POMALYST [Concomitant]
     Active Substance: POMALIDOMIDE
  6. VALACYCLOVIR [Concomitant]
     Active Substance: VALACYCLOVIR HYDROCHLORIDE
  7. PEPCID [Suspect]
     Active Substance: FAMOTIDINE
  8. METOPROLOL [Concomitant]
     Active Substance: METOPROLOL
  9. OXYCODONE [Concomitant]
     Active Substance: OXYCODONE
  10. FENTANYL TRANSDERMAL SYSTEM [Concomitant]
     Active Substance: FENTANYL
  11. TYLENOL [Concomitant]
     Active Substance: ACETAMINOPHEN
  12. VITAMIN D [Concomitant]
     Active Substance: VITAMIN D NOS
  13. CALCIUM [Concomitant]
     Active Substance: CALCIUM

REACTIONS (4)
  - Flatulence [None]
  - Abdominal distension [None]
  - Diarrhoea [None]
  - Abdominal pain [None]

NARRATIVE: CASE EVENT DATE: 20250608
